FAERS Safety Report 4774098-5 (Version None)
Quarter: 2005Q3

REPORT INFORMATION
  Report Type: 
  Country: None (occurrence: None)
  Receive Date: 20050914
  Receipt Date: 20050406
  Transmission Date: 20060218
  Serious: Yes (Death, Hospitalization)
  Sender: FDA-Public Use
  Company Number: 163-20785-05040137

PATIENT
  Age: 76 Year
  Sex: Male

DRUGS (1)
  1. THALOMID [Suspect]
     Indication: MULTIPLE MYELOMA
     Dosage: ORAL
     Route: 048
     Dates: start: 20040517, end: 20050825

REACTIONS (3)
  - DISEASE PROGRESSION [None]
  - HAEMATURIA [None]
  - PNEUMONIA [None]
